FAERS Safety Report 18717511 (Version 1)
Quarter: 2021Q1

REPORT INFORMATION
  Report Type: Spontaneous
  Country: JP (occurrence: JP)
  Receive Date: 20210108
  Receipt Date: 20210108
  Transmission Date: 20210419
  Serious: Yes (Other)
  Sender: FDA-Public Use
  Company Number: JP-PFIZER INC-2021003716

PATIENT

DRUGS (2)
  1. ALDACTONE A 25MG [Suspect]
     Active Substance: SPIRONOLACTONE
     Dosage: 25 MG
     Route: 048
  2. FLUITRAN [Suspect]
     Active Substance: TRICHLORMETHIAZIDE
     Dosage: UNK
     Route: 048

REACTIONS (1)
  - Erythema multiforme [Unknown]
